FAERS Safety Report 24695404 (Version 5)
Quarter: 2025Q2

REPORT INFORMATION
  Report Type: Report from Study
  Country: CA (occurrence: CA)
  Receive Date: 20241204
  Receipt Date: 20250408
  Transmission Date: 20250716
  Serious: Yes (Hospitalization)
  Sender: ABBVIE
  Company Number: CA-ABBVIE-6027739

PATIENT
  Age: 75 Year
  Sex: Female
  Weight: 68 kg

DRUGS (6)
  1. VYALEV [Suspect]
     Active Substance: FOSCARBIDOPA\FOSLEVODOPA
     Indication: Product used for unknown indication
     Route: 058
     Dates: start: 20240611
  2. VYALEV [Suspect]
     Active Substance: FOSCARBIDOPA\FOSLEVODOPA
     Route: 058
  3. CARBIDOPA AND LEVODOPA [Concomitant]
     Active Substance: CARBIDOPA\LEVODOPA
     Indication: Product used for unknown indication
  4. AZILECT [Concomitant]
     Active Substance: RASAGILINE MESYLATE
     Indication: Product used for unknown indication
  5. AMANTADINE [Concomitant]
     Active Substance: AMANTADINE
     Indication: Product used for unknown indication
  6. NEUPRO [Concomitant]
     Active Substance: ROTIGOTINE
     Indication: Product used for unknown indication

REACTIONS (14)
  - Joint dislocation [Not Recovered/Not Resolved]
  - Fall [Not Recovered/Not Resolved]
  - Parkinson^s disease [Unknown]
  - Balance disorder [Unknown]
  - Device issue [Unknown]
  - Hallucination [Not Recovered/Not Resolved]
  - Skin infection [Unknown]
  - Catheter site induration [Unknown]
  - Catheter site pain [Unknown]
  - Device delivery system issue [Unknown]
  - Dry skin [Unknown]
  - Mobility decreased [Not Recovered/Not Resolved]
  - Skin disorder [Unknown]
  - Injection site induration [Unknown]

NARRATIVE: CASE EVENT DATE: 20241120
